FAERS Safety Report 18184705 (Version 1)
Quarter: 2020Q3

REPORT INFORMATION
  Report Type: Spontaneous
  Country: US (occurrence: US)
  Receive Date: 20200824
  Receipt Date: 20200824
  Transmission Date: 20201103
  Serious: No
  Sender: FDA-Public Use
  Company Number: US-BAUSCH-BL-2020-023448

PATIENT
  Age: 59 Year
  Sex: Male

DRUGS (1)
  1. NEOMYCIN AND POLYMYXIN B SULFATES AND HYDROCORTISONE OTIC SUSP [Suspect]
     Active Substance: HYDROCORTISONE\NEOMYCIN SULFATE\POLYMYXIN B SULFATE
     Indication: PRODUCT USED FOR UNKNOWN INDICATION
     Dosage: OVER THE COURSE OF 2 DAYS
     Route: 047
     Dates: start: 20200812

REACTIONS (2)
  - Wrong product administered [Unknown]
  - Therapeutic response unexpected [Unknown]

NARRATIVE: CASE EVENT DATE: 20200812
